FAERS Safety Report 7324015-9 (Version None)
Quarter: 2011Q1

REPORT INFORMATION
  Report Type: 
  Country: None (occurrence: None)
  Receive Date: 20110301
  Receipt Date: 20110223
  Transmission Date: 20110831
  Serious: Yes (Hospitalization)
  Sender: FDA-Public Use
  Company Number: US-BRISTOL-MYERS SQUIBB COMPANY-15496151

PATIENT
  Age: 32 Year
  Sex: Female

DRUGS (2)
  1. CELEXA [Concomitant]
  2. SPRYCEL [Suspect]
     Indication: CHRONIC MYELOID LEUKAEMIA
     Dosage: THERAPY:LAST TWO WEEKS
     Route: 048
     Dates: start: 20110106, end: 20110110

REACTIONS (6)
  - ASTHENIA [None]
  - HEADACHE [None]
  - FALL [None]
  - CHEST PAIN [None]
  - ELECTROCARDIOGRAM QT PROLONGED [None]
  - FEELING ABNORMAL [None]
